FAERS Safety Report 7332541-1 (Version None)
Quarter: 2011Q1

REPORT INFORMATION
  Report Type: 
  Country: None (occurrence: None)
  Receive Date: 20110304
  Receipt Date: 20110221
  Transmission Date: 20110831
  Serious: Yes (Hospitalization, Other)
  Sender: FDA-Public Use
  Company Number: PHHY2011CA14591

PATIENT
  Sex: Male
  Weight: 113.38 kg

DRUGS (1)
  1. SANDOSTATIN LAR [Suspect]
     Indication: ECTOPIC ACTH SYNDROME
     Dosage: 30 MG, QMO
     Route: 030
     Dates: start: 20101130

REACTIONS (8)
  - SWELLING [None]
  - THINKING ABNORMAL [None]
  - HORMONE LEVEL ABNORMAL [None]
  - ABNORMAL DREAMS [None]
  - BLOOD CORTISOL ABNORMAL [None]
  - WEIGHT INCREASED [None]
  - DIABETES MELLITUS [None]
  - PSYCHOTIC DISORDER [None]
